FAERS Safety Report 9698442 (Version 4)
Quarter: 2014Q2

REPORT INFORMATION
  Report Type: Spontaneous
  Country: US (occurrence: US)
  Receive Date: 20131120
  Receipt Date: 20140620
  Transmission Date: 20141212
  Serious: Yes (Life-Threatening, Hospitalization)
  Sender: FDA-Public Use
  Company Number: US-BAYER-2013-140201

PATIENT
  Age: 28 Year
  Sex: Female
  Weight: 86.17 kg

DRUGS (5)
  1. MIRENA [Suspect]
     Indication: CONTRACEPTION
     Dosage: 20 MCG/24HR, CONT
     Route: 015
     Dates: start: 20110315, end: 20120725
  2. NORVASC [Concomitant]
     Indication: HYPERTENSION
     Dosage: 5 MG, UNK
     Route: 048
  3. LISINOPRIL [Concomitant]
     Indication: HYPERTENSION
     Dosage: 10 MG, UNK
     Route: 048
  4. AMBIEN [Concomitant]
     Indication: PAROSMIA
     Route: 048
  5. OCTOVIT [Concomitant]
     Route: 048

REACTIONS (12)
  - Embedded device [None]
  - Genital haemorrhage [None]
  - Injury [None]
  - Emotional distress [None]
  - Abdominal pain lower [None]
  - General physical health deterioration [None]
  - Anxiety [None]
  - Anhedonia [None]
  - Device defective [None]
  - Device issue [None]
  - Nervousness [None]
  - Abdominal pain lower [None]
